FAERS Safety Report 8891994 (Version 1)
Quarter: 2012Q4

REPORT INFORMATION
  Report Type: 
  Country: US (occurrence: US)
  Receive Date: 20121107
  Receipt Date: 20121107
  Transmission Date: 20130627
  Serious: No
  Sender: FDA-Public Use
  Company Number: US-AMGEN-USASP2011051597

PATIENT
  Age: 61 Year
  Sex: Female

DRUGS (9)
  1. ENBREL [Suspect]
     Indication: PRODUCT USED FOR UNKNOWN INDICATION
     Dosage: 50 mg, qwk
     Route: 058
  2. SINGULAIR [Concomitant]
     Dosage: 10 mg, UNK
  3. PREDNISONE [Concomitant]
     Dosage: 2.5 mg, UNK
  4. LIPITOR [Concomitant]
     Dosage: 10 mg, UNK
  5. VICODIN [Concomitant]
     Dosage: UNK
  6. SYNTHROID [Concomitant]
     Dosage: 88 mug, UNK
  7. ADVAIR HFA [Concomitant]
     Dosage: UNK
  8. CETIRIZINE [Concomitant]
     Dosage: 5 mg, UNK
  9. COMBIVENT [Concomitant]
     Dosage: UNK

REACTIONS (1)
  - Sinusitis [Unknown]
